FAERS Safety Report 22129610 (Version 1)
Quarter: 2023Q1

REPORT INFORMATION
  Report Type: Spontaneous
  Country: US (occurrence: None)
  Receive Date: 20230322
  Receipt Date: 20230322
  Transmission Date: 20230417
  Serious: No
  Sender: FDA-Public Use
  Company Number: None

PATIENT
  Age: 68 Year
  Sex: Male
  Weight: 189 kg

DRUGS (19)
  1. PAXLOVID [Suspect]
     Active Substance: NIRMATRELVIR\RITONAVIR
     Indication: SARS-CoV-2 test positive
     Dosage: OTHER QUANTITY : 3 TABLET(S);?FREQUENCY : TWICE A DAY;?
     Route: 048
     Dates: start: 20230204, end: 20230208
  2. METFORMIN [Concomitant]
     Active Substance: METFORMIN HYDROCHLORIDE
  3. ELIQUIS [Concomitant]
     Active Substance: APIXABAN
  4. METOPROLOL [Concomitant]
     Active Substance: METOPROLOL
  5. TRIAMTERENE/HCTZ [Concomitant]
  6. DEVICE [Concomitant]
     Active Substance: DEVICE
  7. Bio Tab LV base pump [Concomitant]
  8. KETOCONAZOLE [Concomitant]
     Active Substance: KETOCONAZOLE
  9. Betamethasone Dipropionate 0.05% cream [Concomitant]
  10. Silver Sulfadiazine 1% cream [Concomitant]
  11. FLUOCINONIDE [Concomitant]
     Active Substance: FLUOCINONIDE
  12. TACROLIMUS [Concomitant]
     Active Substance: TACROLIMUS
  13. one-a-day vitamin [Concomitant]
  14. FISH OIL [Concomitant]
     Active Substance: FISH OIL
  15. VITAMIN E [Concomitant]
     Active Substance: .ALPHA.-TOCOPHEROL
  16. VITAMIN D3 [Concomitant]
     Active Substance: CHOLECALCIFEROL
  17. LORATADINE [Concomitant]
     Active Substance: LORATADINE
  18. MELATONIN [Concomitant]
  19. HEMORRHOID [Concomitant]

REACTIONS (4)
  - Taste disorder [None]
  - Dysgeusia [None]
  - Salivary hypersecretion [None]
  - Quality of life decreased [None]

NARRATIVE: CASE EVENT DATE: 20230204
